FAERS Safety Report 14122279 (Version 1)
Quarter: 2017Q4

REPORT INFORMATION
  Report Type: Spontaneous
  Country: US (occurrence: US)
  Receive Date: 20171024
  Receipt Date: 20171024
  Transmission Date: 20180321
  Serious: No
  Sender: FDA-Public Use
  Company Number: US-IMPAX LABORATORIES, INC-2017-IPXL-02522

PATIENT
  Age: 72 Year
  Sex: Male
  Weight: 87 kg

DRUGS (14)
  1. RYTARY [Suspect]
     Active Substance: CARBIDOPA\LEVODOPA
     Dosage: 36.25/145MG 3 CAPSULES AT 07:00, 11:00, AND 16:00, AND 48.75/195MG 2 CAPSULES AT 20:30
     Route: 048
     Dates: start: 20170815, end: 20170815
  2. VITAMIN D3 [Concomitant]
     Active Substance: CHOLECALCIFEROL
     Indication: PRODUCT USED FOR UNKNOWN INDICATION
     Dosage: 2000 IU, UNK
     Route: 065
  3. SYNTHROID [Concomitant]
     Active Substance: LEVOTHYROXINE SODIUM
     Indication: THYROID DISORDER
     Dosage: 137 ?G, UNK
     Route: 065
  4. RYTARY [Suspect]
     Active Substance: CARBIDOPA\LEVODOPA
     Dosage: 48.75/195MG 2 CAPSULES AT 07:00, + 36.25/145MG 2 PILL AT 11:00, 16:00, + 20:30, 4 /DAY
     Route: 048
     Dates: start: 20170816, end: 20170816
  5. RYTARY [Suspect]
     Active Substance: CARBIDOPA\LEVODOPA
     Dosage: 36.25/145MG 1 CAPSULE TOGETHER WITH 48.75/195MG 1 CAPSULE AT 08:00, 1 /DAY
     Route: 048
     Dates: start: 20170817, end: 20170817
  6. COQ10 [Concomitant]
     Active Substance: UBIDECARENONE
     Indication: PRODUCT USED FOR UNKNOWN INDICATION
     Dosage: 200 MG, UNK
     Route: 065
  7. RYTARY [Suspect]
     Active Substance: CARBIDOPA\LEVODOPA
     Dosage: 48.75/95 MG, 2 PILL ( 07:00 AND 11:00), 36.25/145 MG, 1 PILL WITH 48.75/195MG 1 PILL 16:00 AND 20:30
     Route: 048
     Dates: start: 20170729, end: 201707
  8. RYTARY [Suspect]
     Active Substance: CARBIDOPA\LEVODOPA
     Dosage: 48.75/195MG 2 PILL AT 7:00 + 11:00, 36.25/145MG 2 CAPSULES AT 16:00 + 20:30
     Route: 048
     Dates: start: 20170730, end: 20170814
  9. AMLODIPINE [Concomitant]
     Active Substance: AMLODIPINE BESYLATE
     Indication: HYPERTENSION
     Dosage: 5 MG, UNK
     Route: 065
  10. VITAMIN B12 [Concomitant]
     Active Substance: CYANOCOBALAMIN
     Indication: PRODUCT USED FOR UNKNOWN INDICATION
     Dosage: UNK
     Route: 065
  11. FLOMAX [Concomitant]
     Active Substance: TAMSULOSIN HYDROCHLORIDE
     Indication: PRODUCT USED FOR UNKNOWN INDICATION
     Dosage: UNK
     Route: 065
  12. VENLAFAXINE [Concomitant]
     Active Substance: VENLAFAXINE HYDROCHLORIDE
     Indication: DEPRESSION
     Dosage: 37.5 MG, UNK
     Route: 065
  13. ASPIRIN. [Concomitant]
     Active Substance: ASPIRIN
     Indication: PRODUCT USED FOR UNKNOWN INDICATION
     Dosage: 325 MG, UNK
     Route: 065
  14. RYTARY [Suspect]
     Active Substance: CARBIDOPA\LEVODOPA
     Indication: PARKINSON^S DISEASE
     Dosage: 48.75/95 MG, 2 DF, 4 /DAY (07:00, 11:00, 16:00, AND 20:30)
     Route: 048
     Dates: start: 20170727, end: 201707

REACTIONS (2)
  - Anxiety [Not Recovered/Not Resolved]
  - Expired product administered [Unknown]

NARRATIVE: CASE EVENT DATE: 20170729
